FAERS Safety Report 8053756-3 (Version None)
Quarter: 2012Q1

REPORT INFORMATION
  Report Type: 
  Country: None (occurrence: None)
  Receive Date: 20120118
  Receipt Date: 20120109
  Transmission Date: 20120608
  Serious: Yes (Hospitalization, Other)
  Sender: FDA-Public Use
  Company Number: ES-AMGEN-ESPSP2011060543

PATIENT
  Age: 82 Year
  Sex: Female

DRUGS (15)
  1. CINACALCET HYDROCHLORIDE [Suspect]
     Indication: HYPERPARATHYROIDISM SECONDARY
     Dosage: 60 MG, QD
     Dates: start: 20111001
  2. TRANKIMACIN [Concomitant]
     Dosage: 0.25 MG, UNK
  3. ASPIRIN [Concomitant]
     Dosage: 300 MG, UNK
  4. MASTICAL [Concomitant]
  5. CINACALCET HYDROCHLORIDE [Suspect]
     Dosage: 30 MG, UNK
     Dates: start: 20080601, end: 20100901
  6. NITRO-DUR [Concomitant]
     Dosage: UNK UNK, QD
  7. BELOKEN [Concomitant]
  8. CINACALCET HYDROCHLORIDE [Suspect]
     Dosage: 30 MG, UNK
     Dates: start: 20110301, end: 20111001
  9. ACFOL [Concomitant]
     Dosage: 5 MG, UNK
  10. PRIMPERAN COMPLEX [Concomitant]
     Dosage: UNK
  11. EMPORTAL [Concomitant]
  12. TWYNSTA [Concomitant]
     Dosage: UNK UNK, QD
  13. OMEPRAZOLE [Concomitant]
     Dosage: 20 MG, UNK
  14. SORBISTERIT [Concomitant]
     Dosage: UNK UNK, QWK
  15. LIPEMOL [Concomitant]
     Dosage: 10 MG, QD

REACTIONS (2)
  - DEMENTIA [None]
  - HALLUCINATION, AUDITORY [None]
